FAERS Safety Report 11153011 (Version 3)
Quarter: 2015Q2

REPORT INFORMATION
  Report Type: Spontaneous
  Country: US (occurrence: None)
  Receive Date: 20150528
  Receipt Date: 20150624
  Transmission Date: 20150821
  Serious: Yes (Other)
  Sender: FDA-Public Use
  Company Number: ADR-2015-00984

PATIENT
  Age: 65 Year
  Sex: Female

DRUGS (1)
  1. LIORESAL [Suspect]
     Active Substance: BACLOFEN
     Indication: MUSCLE SPASTICITY

REACTIONS (12)
  - Paraesthesia [None]
  - Disorientation [None]
  - Muscle spasticity [None]
  - Device battery issue [None]
  - Peripheral swelling [None]
  - Hallucination, auditory [None]
  - Oedema peripheral [None]
  - Muscle tightness [None]
  - Withdrawal syndrome [None]
  - Hypertension [None]
  - Condition aggravated [None]
  - Pruritus [None]

NARRATIVE: CASE EVENT DATE: 20150511
